FAERS Safety Report 6849919-2 (Version None)
Quarter: 2010Q3

REPORT INFORMATION
  Report Type: 
  Country: None (occurrence: None)
  Receive Date: 20100716
  Receipt Date: 20071211
  Transmission Date: 20110219
  Serious: No
  Sender: FDA-Public Use
  Company Number: US-PFIZER INC-2007084812

PATIENT
  Sex: Male
  Weight: 87.1 kg

DRUGS (14)
  1. CHANTIX [Suspect]
     Indication: SMOKING CESSATION THERAPY
     Dates: start: 20070910
  2. PROGRAF [Concomitant]
  3. CELLCEPT [Concomitant]
  4. PREDNISONE [Concomitant]
  5. NYSTATIN [Concomitant]
  6. BACTRIM [Concomitant]
  7. LOPRESSOR [Concomitant]
  8. NORVASC [Concomitant]
  9. STARLIX [Concomitant]
  10. PROTONIX [Concomitant]
  11. MONTELUKAST SODIUM [Concomitant]
  12. MEGESTROL [Concomitant]
  13. TRICOR [Concomitant]
  14. ALL OTHER THERAPEUTIC PRODUCTS [Concomitant]

REACTIONS (1)
  - PRURITUS [None]
